FAERS Safety Report 4371821-9 (Version None)
Quarter: 2004Q2

REPORT INFORMATION
  Report Type: 
  Country: None (occurrence: None)
  Receive Date: 20040601
  Receipt Date: 20040518
  Transmission Date: 20050107
  Serious: Yes (Other)
  Sender: FDA-Public Use
  Company Number: FABR-10591

PATIENT
  Age: 66 Year
  Sex: Male
  Weight: 67.586 kg

DRUGS (5)
  1. FABRAZYME [Suspect]
     Indication: FABRY'S DISEASE
     Dosage: 70 MG Q2WKS IV
     Route: 042
     Dates: start: 20031014
  2. DIPHENHYDRAMINE HCL [Concomitant]
  3. LISINOPRIL [Concomitant]
  4. FLONASE [Concomitant]
  5. ATROVENT [Concomitant]

REACTIONS (2)
  - ATRIAL FIBRILLATION [None]
  - DISEASE RECURRENCE [None]
